FAERS Safety Report 10602342 (Version 1)
Quarter: 2014Q4

REPORT INFORMATION
  Report Type: Spontaneous
  Country: US (occurrence: US)
  Receive Date: 20141124
  Receipt Date: 20141124
  Transmission Date: 20150529
  Serious: No
  Sender: FDA-Public Use
  Company Number: US-TARO-2014P1002362

PATIENT
  Age: 53 Year
  Sex: Male
  Weight: 124.74 kg

DRUGS (16)
  1. METOPROLOL ER [Concomitant]
     Active Substance: METOPROLOL SUCCINATE
  2. CYMBALTA [Concomitant]
     Active Substance: DULOXETINE HYDROCHLORIDE
  3. INSULIN [Concomitant]
     Active Substance: INSULIN NOS
  4. CARBAMAZEPINE TABLETS USP 200 MG [Suspect]
     Active Substance: CARBAMAZEPINE
     Indication: DISTURBANCE IN ATTENTION
  5. VITAMIN B COMPLEX [Concomitant]
     Active Substance: CYANOCOBALAMIN\DEXPANTHENOL\NIACINAMIDE\PYRIDOXINE HYDROCHLORIDE\RIBOFLAVIN 5^-PHOSPHATE SODIUM\THIAMINE HYDROCHLORIDE\VITAMIN B COMPLEX
  6. VITAMIN D [Concomitant]
     Active Substance: CHOLECALCIFEROL
  7. OMEGA 3 SUPPLEMENT [Concomitant]
  8. ANDROGEL [Concomitant]
     Active Substance: TESTOSTERONE
  9. LAMOTRIGINE. [Concomitant]
     Active Substance: LAMOTRIGINE
  10. MULTIVITAMIN [Concomitant]
     Active Substance: VITAMINS
  11. ALPRAZOLAM. [Concomitant]
     Active Substance: ALPRAZOLAM
  12. FOLIC ACID. [Concomitant]
     Active Substance: FOLIC ACID
  13. ARGININE [Concomitant]
     Active Substance: ARGININE
  14. CARBAMAZEPINE TABLETS USP 200 MG [Suspect]
     Active Substance: CARBAMAZEPINE
     Indication: EMOTIONAL DISORDER
     Route: 048
     Dates: start: 20131121, end: 20131124
  15. ASPIRIN 81 [Concomitant]
  16. DHEA [Concomitant]
     Active Substance: DEHYDROEPIANDROSTERONE-3-SULFATE SODIUM

REACTIONS (2)
  - Off label use [Recovered/Resolved]
  - Mood swings [Recovered/Resolved]

NARRATIVE: CASE EVENT DATE: 20131122
